FAERS Safety Report 5240435-0 (Version None)
Quarter: 2007Q1

REPORT INFORMATION
  Report Type: 
  Country: None (occurrence: None)
  Receive Date: 20070219
  Receipt Date: 20070205
  Transmission Date: 20070707
  Serious: Yes (Other)
  Sender: FDA-Public Use
  Company Number: PHRM2007FR00758

PATIENT
  Age: 75 Year
  Sex: Male

DRUGS (6)
  1. ACTISOUFRE [Concomitant]
     Route: 048
  2. COAPROVEL [Concomitant]
     Route: 048
  3. KARDEGIC [Concomitant]
     Route: 048
  4. LOXEN [Concomitant]
     Route: 048
  5. DOLIPRANE [Concomitant]
     Route: 048
  6. LESCOL [Suspect]
     Indication: HYPERCHOLESTEROLAEMIA
     Dosage: 80 MG, QD
     Route: 048
     Dates: start: 19850101

REACTIONS (5)
  - DISEASE RECURRENCE [None]
  - HEADACHE [None]
  - HYPERTENSION [None]
  - MUSCLE SPASMS [None]
  - MYALGIA [None]
